FAERS Safety Report 19678483 (Version 2)
Quarter: 2021Q3

REPORT INFORMATION
  Report Type: Report from Study
  Country: None (occurrence: US)
  Receive Date: 20210810
  Receipt Date: 20210815
  Transmission Date: 20211014
  Serious: Yes (Other)
  Sender: FDA-Public Use
  Company Number: US-ABBVIE-21K-163-4026731-00

PATIENT
  Age: 40 Year
  Sex: Male
  Weight: 118.04 kg

DRUGS (4)
  1. HUMIRA [Suspect]
     Active Substance: ADALIMUMAB
     Indication: CROHN^S DISEASE
     Dosage: DAY 1
     Route: 058
     Dates: start: 20210806, end: 20210806
  2. HUMIRA [Suspect]
     Active Substance: ADALIMUMAB
     Indication: CROHN^S DISEASE
     Route: 058
     Dates: start: 2019, end: 202004
  3. METHOTREXATE. [Concomitant]
     Active Substance: METHOTREXATE
     Indication: PRODUCT USED FOR UNKNOWN INDICATION
  4. COVID?19 VACCINE [Concomitant]
     Indication: COVID-19 IMMUNISATION
     Dosage: JOHNSON^S AND JOHNSON^S
     Route: 030
     Dates: start: 2021, end: 2021

REACTIONS (10)
  - Gastrointestinal sounds abnormal [Recovering/Resolving]
  - Fistula [Unknown]
  - Insomnia [Unknown]
  - Colectomy [Unknown]
  - Asthenia [Unknown]
  - Haemorrhage [Not Recovered/Not Resolved]
  - Abdominal discomfort [Recovering/Resolving]
  - Gastric operation [Unknown]
  - Crohn^s disease [Not Recovered/Not Resolved]
  - Device related infection [Not Recovered/Not Resolved]

NARRATIVE: CASE EVENT DATE: 2021
